FAERS Safety Report 6420242-3 (Version None)
Quarter: 2009Q4

REPORT INFORMATION
  Report Type: 
  Country: None (occurrence: None)
  Receive Date: 20091029
  Receipt Date: 20091023
  Transmission Date: 20100525
  Serious: Yes (Hospitalization)
  Sender: FDA-Public Use
  Company Number: PHHY2009CA46435

PATIENT
  Sex: Male

DRUGS (1)
  1. SANDOSTATIN LAR [Suspect]
     Indication: NEUROENDOCRINE TUMOUR
     Dosage: 40 MG, EVERY 4 WEEKS
     Route: 030
     Dates: start: 20071024

REACTIONS (2)
  - ARTIFICIAL HEART DEVICE USER [None]
  - OXYGEN SATURATION DECREASED [None]
